FAERS Safety Report 26189895 (Version 1)
Quarter: 2025Q4

REPORT INFORMATION
  Report Type: Spontaneous
  Country: EU (occurrence: EU)
  Receive Date: 20251223
  Receipt Date: 20251223
  Transmission Date: 20260118
  Serious: Yes (Hospitalization, Other)
  Sender: UPSHER SMITH LABORATORIES
  Company Number: EU-UPSHER-SMITH LABORATORIES, LLC-20251201616

PATIENT
  Age: 47 Year
  Sex: Female

DRUGS (1)
  1. POTASSIUM CHLORIDE [Suspect]
     Active Substance: POTASSIUM CHLORIDE
     Indication: Product used for unknown indication
     Dosage: UNK (50 POTASSIUM CHLORIDE TABLETS)
     Route: 065

REACTIONS (3)
  - Intentional overdose [Unknown]
  - Bezoar [Unknown]
  - Hyperkalaemia [Recovering/Resolving]
